FAERS Safety Report 21503778 (Version 4)
Quarter: 2023Q2

REPORT INFORMATION
  Report Type: Report from Study
  Country: BR (occurrence: BR)
  Receive Date: 20221025
  Receipt Date: 20230524
  Transmission Date: 20230722
  Serious: Yes (Hospitalization, Other)
  Sender: FDA-Public Use
  Company Number: BR-TAKEDA-2022TUS077148

PATIENT
  Age: 34 Year
  Sex: Female
  Weight: 49 kg

DRUGS (5)
  1. VEDOLIZUMAB [Suspect]
     Active Substance: VEDOLIZUMAB
     Indication: Colitis ulcerative
     Dosage: 300 MILLIGRAM
     Route: 042
     Dates: start: 202204, end: 202209
  2. VEDOLIZUMAB [Suspect]
     Active Substance: VEDOLIZUMAB
     Indication: Crohn^s disease
  3. DIENOGEST [Concomitant]
     Active Substance: DIENOGEST
     Indication: Endometriosis
     Dosage: UNK
  4. CORTISONE [Concomitant]
     Active Substance: CORTISONE
     Dosage: 60 MILLIGRAM
  5. CORTISONE [Concomitant]
     Active Substance: CORTISONE
     Dosage: UNK

REACTIONS (10)
  - Crohn^s disease [Unknown]
  - Intestinal fistula [Unknown]
  - Abdominal abscess [Unknown]
  - Spondylitis [Unknown]
  - Gastrointestinal inflammation [Unknown]
  - Limb discomfort [Unknown]
  - Back pain [Unknown]
  - Spinal pain [Recovered/Resolved]
  - Gastrointestinal sounds abnormal [Unknown]
  - Abdominal pain [Unknown]

NARRATIVE: CASE EVENT DATE: 20220519
